FAERS Safety Report 14502209 (Version 1)
Quarter: 2018Q1

REPORT INFORMATION
  Report Type: Spontaneous
  Country: US (occurrence: US)
  Receive Date: 20180208
  Receipt Date: 20180208
  Transmission Date: 20180509
  Serious: No
  Sender: FDA-Public Use
  Company Number: US-009507513-1610USA000546

PATIENT
  Sex: Female

DRUGS (3)
  1. NITROFURANTOIN. [Suspect]
     Active Substance: NITROFURANTOIN
     Dosage: UNK, BID
     Route: 048
     Dates: start: 20160926
  2. VITAMINS (UNSPECIFIED) [Suspect]
     Active Substance: VITAMINS
     Dosage: DAILY
     Dates: start: 20160916
  3. JANUVIA [Suspect]
     Active Substance: SITAGLIPTIN PHOSPHATE
     Dosage: DAILY(1)
     Route: 048
     Dates: start: 20150417

REACTIONS (1)
  - Maternal exposure during pregnancy [Recovered/Resolved]
